FAERS Safety Report 4859744-X (Version None)
Quarter: 2005Q4

REPORT INFORMATION
  Report Type: 
  Country: None (occurrence: None)
  Receive Date: 20051219
  Receipt Date: 20051209
  Transmission Date: 20060501
  Serious: Yes (Other)
  Sender: FDA-Public Use
  Company Number: US-JNJFOC-20051000863

PATIENT
  Sex: Female
  Weight: 99.79 kg

DRUGS (7)
  1. DURAGESIC-100 [Suspect]
     Route: 062
     Dates: start: 20000101, end: 20050901
  2. KLONIPIN [Concomitant]
  3. KEPPRA [Concomitant]
  4. LEVOXYL [Concomitant]
     Indication: HYPOTHYROIDISM
  5. PROTONIX [Concomitant]
     Indication: GASTROINTESTINAL DISORDER
  6. MSIR [Concomitant]
     Indication: PAIN
  7. CYMBALTA [Concomitant]

REACTIONS (5)
  - APPLICATION SITE REACTION [None]
  - CHEST DISCOMFORT [None]
  - DYSPNOEA [None]
  - NEOPLASM [None]
  - PAIN IN EXTREMITY [None]
